FAERS Safety Report 19676594 (Version 1)
Quarter: 2021Q3

REPORT INFORMATION
  Report Type: Spontaneous
  Country: CZ (occurrence: CZ)
  Receive Date: 20210809
  Receipt Date: 20210809
  Transmission Date: 20211014
  Serious: Yes (Other)
  Sender: FDA-Public Use
  Company Number: CZ-MYLANLABS-2021M1048519

PATIENT
  Age: 50 Year
  Sex: Female
  Weight: 65 kg

DRUGS (3)
  1. KLACID [Suspect]
     Active Substance: CLARITHROMYCIN
     Indication: PNEUMONIA
     Dosage: 500 MILLIGRAM (1 IN 12 HOURS)
     Route: 048
     Dates: start: 20210119, end: 20210125
  2. AMOKSIKLAV                         /00756801/ [Concomitant]
     Active Substance: AMOXICILLIN\CLAVULANATE POTASSIUM
     Indication: PNEUMONIA
     Dosage: 1 GRAM (ONE TABLET IN 12 HOURS)
     Route: 048
     Dates: start: 20210119, end: 20210129
  3. KLACID [Suspect]
     Active Substance: CLARITHROMYCIN
     Indication: COVID-19

REACTIONS (4)
  - Chest pain [Recovering/Resolving]
  - Hypotension [Recovered/Resolved]
  - Vaginal discharge [Recovering/Resolving]
  - Nausea [Recovering/Resolving]

NARRATIVE: CASE EVENT DATE: 20210126
